FAERS Safety Report 5998022-2 (Version None)
Quarter: 2008Q4

REPORT INFORMATION
  Report Type: 
  Country: None (occurrence: None)
  Receive Date: 20081211
  Receipt Date: 20081125
  Transmission Date: 20090506
  Serious: Yes (Hospitalization)
  Sender: FDA-Public Use
  Company Number: KV200800536

PATIENT
  Age: 69 Year
  Sex: Female

DRUGS (9)
  1. ISOSORBIDE MONONITRATE [Suspect]
     Indication: CARDIAC FAILURE CONGESTIVE
     Dosage: 30 MG, QD, ORAL
     Route: 048
     Dates: start: 20080101, end: 20081124
  2. LASIX [Concomitant]
  3. ACTOS /01460201/ (PIOGLITAZONE) [Concomitant]
  4. JANUVIA (SITAGLIPTIN PHOSPHATE) [Concomitant]
  5. NEXIUM	/01479302/ (ESOMEPRAZOLE MAGNESIUM) [Concomitant]
  6. PLAVIX [Concomitant]
  7. ACCUPRIL [Concomitant]
  8. LIPITOR [Concomitant]
  9. KLOR-CON [Concomitant]

REACTIONS (4)
  - CARDIAC FAILURE CONGESTIVE [None]
  - CONDITION AGGRAVATED [None]
  - DIZZINESS [None]
  - PRODUCT QUALITY ISSUE [None]
